FAERS Safety Report 24157620 (Version 2)
Quarter: 2024Q3

REPORT INFORMATION
  Report Type: Spontaneous
  Country: FI (occurrence: FI)
  Receive Date: 20240731
  Receipt Date: 20240805
  Transmission Date: 20241017
  Serious: Yes (Other)
  Sender: OTSUKA
  Company Number: None

PATIENT
  Age: 31 Year
  Sex: Female

DRUGS (5)
  1. ABILIFY [Suspect]
     Active Substance: ARIPIPRAZOLE
     Indication: Bipolar II disorder
     Dosage: 5 MG
     Route: 048
     Dates: start: 20240704
  2. ABILIFY [Suspect]
     Active Substance: ARIPIPRAZOLE
     Dosage: RECENTLY INCREASED TO 10 MG
     Route: 048
  3. OPTIPAR [Concomitant]
     Indication: Anxiety
     Dosage: 40 MG
     Route: 048
     Dates: start: 2023
  4. QUETIAPINE FUMARATE [Concomitant]
     Active Substance: QUETIAPINE FUMARATE
     Indication: Bipolar II disorder
     Dosage: 300 MG
     Route: 048
     Dates: start: 202407
  5. PREGABALIN [Concomitant]
     Active Substance: PREGABALIN
     Indication: Anxiety
     Dosage: 300 MG
     Route: 048
     Dates: start: 2017

REACTIONS (8)
  - Psychotic symptom [Recovering/Resolving]
  - Suicidal ideation [Recovering/Resolving]
  - Paranoia [Recovering/Resolving]
  - Abnormal behaviour [Recovering/Resolving]
  - Insomnia [Recovering/Resolving]
  - Impulsive behaviour [Recovering/Resolving]
  - Restlessness [Recovering/Resolving]
  - Product use in unapproved indication [Unknown]

NARRATIVE: CASE EVENT DATE: 20240704
